FAERS Safety Report 6554083-3 (Version None)
Quarter: 2010Q1

REPORT INFORMATION
  Report Type: 
  Country: None (occurrence: None)
  Receive Date: 20100127
  Receipt Date: 20100115
  Transmission Date: 20100710
  Serious: Yes (Death)
  Sender: FDA-Public Use
  Company Number: GB-ELI_LILLY_AND_COMPANY-GB200811003518

PATIENT
  Age: 50 Year
  Sex: Male
  Weight: 109 kg

DRUGS (4)
  1. ZYPREXA [Suspect]
     Indication: PSYCHOTIC DISORDER
     Dosage: 10 MG, DAILY (1/D)
     Route: 048
     Dates: start: 20070202
  2. ACAMPROSATE [Concomitant]
     Indication: ALCOHOL ABUSE
     Dosage: UNK, UNKNOWN
     Route: 065
     Dates: start: 20071201
  3. THIAMINE [Concomitant]
     Dosage: 100 MG, DAILY (1/D)
     Route: 065
  4. VITAMIN B COMPLEX /00212701/ [Concomitant]
     Dosage: 2 D/F, DAILY (1/D)
     Route: 065

REACTIONS (3)
  - ACUTE MYOCARDIAL INFARCTION [None]
  - DISEASE RECURRENCE [None]
  - WEIGHT INCREASED [None]
